FAERS Safety Report 14190765 (Version 3)
Quarter: 2017Q4

REPORT INFORMATION
  Report Type: Spontaneous
  Country: SE (occurrence: SE)
  Receive Date: 20171115
  Receipt Date: 20171206
  Transmission Date: 20180321
  Serious: Yes (Life-Threatening, Hospitalization)
  Sender: FDA-Public Use
  Company Number: SE-SA-2017SA222555

PATIENT
  Age: 66 Year
  Sex: Female

DRUGS (10)
  1. FABRAZYME [Suspect]
     Active Substance: AGALSIDASE BETA
     Indication: FABRY^S DISEASE
     Route: 041
  2. EMGESAN [Concomitant]
     Indication: HYPOMAGNESAEMIA
     Route: 065
  3. ALVEDON [Concomitant]
     Active Substance: ACETAMINOPHEN
     Route: 065
  4. EPLERENONE. [Concomitant]
     Active Substance: EPLERENONE
     Indication: HYPERTENSION
     Route: 065
  5. WARAN [Concomitant]
     Active Substance: WARFARIN SODIUM
     Indication: ATRIAL FIBRILLATION
     Route: 065
  6. KALEORID [Concomitant]
     Active Substance: POTASSIUM CHLORIDE
     Indication: HYPOKALAEMIA
     Route: 065
  7. ENALAPRIL [Concomitant]
     Active Substance: ENALAPRIL
     Indication: CARDIAC FAILURE
     Route: 065
  8. METOPROLOL. [Concomitant]
     Active Substance: METOPROLOL
     Indication: ATRIAL FIBRILLATION
     Route: 065
  9. KALCIPOS [Concomitant]
     Active Substance: CALCIUM CARBONATE
     Route: 065
  10. FURIX [Concomitant]
     Active Substance: FUROSEMIDE
     Indication: CARDIAC FAILURE
     Dosage: DOSE:40 MG THREE TIMES IN THE MORNING AND 40 MG ONCE ?IN THE AFTERNOON
     Route: 065

REACTIONS (4)
  - Device malfunction [Recovered/Resolved]
  - Immune system disorder [Unknown]
  - Syncope [Recovered/Resolved]
  - C-reactive protein increased [Unknown]

NARRATIVE: CASE EVENT DATE: 20170913
